FAERS Safety Report 7845218-0 (Version None)
Quarter: 2011Q4

REPORT INFORMATION
  Report Type: 
  Country: None (occurrence: None)
  Receive Date: 20111025
  Receipt Date: 20111021
  Transmission Date: 20120403
  Serious: Yes (Death, Congenital Anomaly)
  Sender: FDA-Public Use
  Company Number: DK-ABBOTT-11P-044-0867307-00

PATIENT
  Sex: Female

DRUGS (1)
  1. DEPAKENE [Suspect]
     Indication: MATERNAL EXPOSURE DURING PREGNANCY
     Route: 064

REACTIONS (6)
  - CONGENITAL FOOT MALFORMATION [None]
  - HEART DISEASE CONGENITAL [None]
  - MATERNAL EXPOSURE DURING PREGNANCY [None]
  - CEREBELLAR HYPOPLASIA [None]
  - CONGENITAL HAND MALFORMATION [None]
  - DYSMORPHISM [None]
